FAERS Safety Report 26019526 (Version 1)
Quarter: 2025Q4

REPORT INFORMATION
  Report Type: Report from Study
  Country: IN (occurrence: IN)
  Receive Date: 20251110
  Receipt Date: 20251110
  Transmission Date: 20260118
  Serious: Yes (Other)
  Sender: DAIICHI
  Company Number: IN-AstraZeneca-CH-00873518A

PATIENT
  Age: 45 Year
  Sex: Female

DRUGS (1)
  1. ENHERTU [Suspect]
     Active Substance: FAM-TRASTUZUMAB DERUXTECAN-NXKI
     Indication: Product used for unknown indication
     Dosage: 300 MG, ONCE EVERY 3 WK
     Route: 042
     Dates: start: 20250515

REACTIONS (14)
  - Metastases to central nervous system [Unknown]
  - Decreased appetite [Recovered/Resolved]
  - Asthenia [Recovered/Resolved]
  - Taste disorder [Unknown]
  - Parosmia [Unknown]
  - Constipation [Unknown]
  - Fatigue [Unknown]
  - Pain in extremity [Unknown]
  - Bone pain [Unknown]
  - Neck pain [Unknown]
  - Pain [Unknown]
  - Dysphonia [Unknown]
  - Insomnia [Unknown]
  - Memory impairment [Unknown]

NARRATIVE: CASE EVENT DATE: 20250520
